FAERS Safety Report 4604490-0 (Version None)
Quarter: 2005Q2

REPORT INFORMATION
  Report Type: 
  Country: None (occurrence: None)
  Receive Date: 20050223
  Receipt Date: 20041117
  Transmission Date: 20051028
  Serious: No
  Sender: FDA-Public Use
  Company Number: PHEH2004US12433

PATIENT
  Sex: Female

DRUGS (1)
  1. ZELNORM [Suspect]
     Dosage: 2 MG, BID, ORAL
     Route: 048

REACTIONS (3)
  - ANXIETY [None]
  - INSOMNIA [None]
  - WEIGHT DECREASED [None]
